FAERS Safety Report 15046466 (Version 2)
Quarter: 2018Q4

REPORT INFORMATION
  Report Type: Report from Study
  Country: US (occurrence: US)
  Receive Date: 20180621
  Receipt Date: 20181119
  Transmission Date: 20190204
  Serious: Yes (Other)
  Sender: FDA-Public Use
  Company Number: US-ACTELION-A-US2018-173965

PATIENT
  Age: 76 Year
  Sex: Male

DRUGS (3)
  1. ADEMPAS [Concomitant]
     Active Substance: RIOCIGUAT
  2. TRACLEER [Suspect]
     Active Substance: BOSENTAN
     Indication: PULMONARY HYPERTENSION
     Dosage: 125 MG, BID
     Route: 048
  3. WARFARIN [Concomitant]
     Active Substance: WARFARIN

REACTIONS (8)
  - Infusion [Unknown]
  - Dyspnoea [Unknown]
  - Transfusion [Unknown]
  - Malaise [Unknown]
  - Dyspnoea at rest [Unknown]
  - Chronic gastrointestinal bleeding [Unknown]
  - Haemoglobin abnormal [Unknown]
  - Chest pain [Unknown]
